FAERS Safety Report 23166985 (Version 2)
Quarter: 2024Q1

REPORT INFORMATION
  Report Type: Spontaneous
  Country: US (occurrence: US)
  Receive Date: 20231109
  Receipt Date: 20240206
  Transmission Date: 20240410
  Serious: Yes (Hospitalization)
  Sender: FDA-Public Use
  Company Number: US-PFIZER INC-202300354292

PATIENT
  Age: 9 Year
  Sex: Female

DRUGS (1)
  1. OXBRYTA [Suspect]
     Active Substance: VOXELOTOR
     Dosage: 900 MG, 1X/DAY (300MG, 3TABS FOR ORAL SUSPENSION ONCE DAILY)
     Route: 048

REACTIONS (2)
  - Gastrointestinal disorder [Unknown]
  - Weight increased [Not Recovered/Not Resolved]
